FAERS Safety Report 7898781-8 (Version None)
Quarter: 2011Q4

REPORT INFORMATION
  Report Type: 
  Country: None (occurrence: None)
  Receive Date: 20111107
  Receipt Date: 20110817
  Transmission Date: 20120403
  Serious: No
  Sender: FDA-Public Use
  Company Number: US-ABBOTT-11P-163-0848022-00

PATIENT
  Sex: Female
  Weight: 62.652 kg

DRUGS (4)
  1. CELEBREX [Concomitant]
     Indication: PAIN
  2. TRICOR [Suspect]
     Indication: BLOOD TRIGLYCERIDES INCREASED
     Dates: start: 20110725, end: 20110816
  3. LEVOXYL [Concomitant]
     Indication: HYPOTHYROIDISM
  4. DIOVAN [Concomitant]
     Indication: HYPERTENSION

REACTIONS (1)
  - ALOPECIA [None]
